FAERS Safety Report 7209100-4 (Version None)
Quarter: 2011Q1

REPORT INFORMATION
  Report Type: 
  Country: None (occurrence: None)
  Receive Date: 20110104
  Receipt Date: 20101227
  Transmission Date: 20110831
  Serious: Yes (Hospitalization)
  Sender: FDA-Public Use
  Company Number: FR-ABBOTT-10P-056-0693985-00

PATIENT
  Sex: Female

DRUGS (3)
  1. PREVISCAN [Interacting]
     Indication: ATRIAL FIBRILLATION
     Dosage: 1TAB/D FOR 3DAYS/4 THEN 3/4 TAB 1DAY/4
     Dates: end: 20101108
  2. EFFERALGAN CODEINE [Concomitant]
     Indication: MIGRAINE
     Route: 048
  3. MONOZECLAR [Suspect]
     Indication: COUGH
     Route: 048
     Dates: start: 20101101, end: 20101105

REACTIONS (2)
  - MUSCLE HAEMORRHAGE [None]
  - DRUG INTERACTION [None]
